FAERS Safety Report 18897532 (Version 1)
Quarter: 2021Q1

REPORT INFORMATION
  Report Type: Spontaneous
  Country: US (occurrence: US)
  Receive Date: 20210212
  Receipt Date: 20210212
  Transmission Date: 20210420
  Serious: Yes (Hospitalization)
  Sender: FDA-Public Use
  Company Number: None

PATIENT
  Age: 73 Year
  Sex: Female
  Weight: 79.4 kg

DRUGS (1)
  1. TEMOZOLOMIDE 290MG [Suspect]
     Active Substance: TEMOZOLOMIDE
     Dates: end: 20201206

REACTIONS (9)
  - Urinary tract infection [None]
  - Seizure [None]
  - Illiteracy [None]
  - Mobility decreased [None]
  - Vasogenic cerebral oedema [None]
  - Swelling [None]
  - Hemiparesis [None]
  - Confusional state [None]
  - Asthenia [None]

NARRATIVE: CASE EVENT DATE: 20201229
